FAERS Safety Report 10495421 (Version 2)
Quarter: 2014Q4

REPORT INFORMATION
  Report Type: Spontaneous
  Country: FR (occurrence: FR)
  Receive Date: 20141003
  Receipt Date: 20141003
  Transmission Date: 20150528
  Serious: Yes (Hospitalization)
  Sender: FDA-Public Use
  Company Number: FR-PFIZER INC-2014256685

PATIENT
  Age: 75 Year
  Sex: Female

DRUGS (7)
  1. GLUCOR [Concomitant]
     Active Substance: ACARBOSE
     Dosage: UNK
     Dates: start: 201407
  2. PARACETAMOL [Concomitant]
     Active Substance: ACETAMINOPHEN
     Dosage: 500 MG, UP TO 4X/DAY IF NEEDED
  3. GLUCOPHAGE [Suspect]
     Active Substance: METFORMIN HYDROCHLORIDE
     Indication: TYPE 2 DIABETES MELLITUS
     Dosage: 500 MG, 2X/DAY
     Route: 048
     Dates: start: 20140603, end: 20140619
  4. GLUCOR [Concomitant]
     Active Substance: ACARBOSE
     Indication: TYPE 2 DIABETES MELLITUS
     Dosage: UNK
     Dates: end: 20140603
  5. SMECTA [Concomitant]
     Active Substance: MONTMORILLONITE
  6. UVEDOSE [Concomitant]
     Active Substance: CHOLECALCIFEROL
  7. FRAGMINE [Suspect]
     Active Substance: DALTEPARIN SODIUM
     Indication: THROMBOSIS PROPHYLAXIS
     Dosage: 1 DF, 1X/DAY
     Route: 058
     Dates: start: 20140603, end: 20140619

REACTIONS (3)
  - Blood alkaline phosphatase increased [Recovered/Resolved]
  - Cholestasis [Recovering/Resolving]
  - Gamma-glutamyltransferase increased [Recovered/Resolved]

NARRATIVE: CASE EVENT DATE: 20140604
